FAERS Safety Report 9561135 (Version 1)
Quarter: 2013Q3

REPORT INFORMATION
  Report Type: Spontaneous
  Country: US (occurrence: None)
  Receive Date: 20130821
  Receipt Date: 20130821
  Transmission Date: 20140515
  Serious: Yes (Other)
  Sender: FDA-Public Use
  Company Number: 1000045139

PATIENT
  Age: 71 Year
  Sex: Female

DRUGS (9)
  1. TUDORZA PRESSAIR [Suspect]
     Indication: CHRONIC OBSTRUCTIVE PULMONARY DISEASE
     Dosage: 800 MCG (400 MCG, 2 IN 1 D), RESPIRATORY (INHALATION)
     Dates: start: 201305, end: 20130512
  2. ALBUTEROL (ALBUTEROL) [Concomitant]
  3. BROVANA (ARFORMOTEROL TARTRATE) (ARFORMOTEROL TARTRATE) [Concomitant]
  4. BUDESONIDE (BUDESONIDE) [Concomitant]
  5. TOPROL (METOPROLOL SUCCINATE) (METOPROLOL SUCCINATE) [Concomitant]
  6. AMLODIPINE (AMLODIPINE) [Concomitant]
  7. CRESTOR (ROSUVASTATIN CALCIUM) (ROSUVASTATIN CALCIUM) [Concomitant]
  8. ESCITALOPRAM (ESCITALOPRAM OXALATE) (ESCITALOPRAM OXALATE) [Concomitant]
  9. CALCIUM (CALCIUM) [Concomitant]

REACTIONS (1)
  - Headache [None]
